FAERS Safety Report 8317786-6 (Version None)
Quarter: 2012Q2

REPORT INFORMATION
  Report Type: 
  Country: None (occurrence: None)
  Receive Date: 20120427
  Receipt Date: 20120423
  Transmission Date: 20120825
  Serious: Yes (Other)
  Sender: FDA-Public Use
  Company Number: IT-PFIZER INC-2012100880

PATIENT
  Sex: Male

DRUGS (1)
  1. CYTARABINE [Suspect]

REACTIONS (3)
  - LIPASE INCREASED [None]
  - AMYLASE INCREASED [None]
  - TRANSAMINASES INCREASED [None]
